FAERS Safety Report 21322237 (Version 1)
Quarter: 2022Q3

REPORT INFORMATION
  Report Type: Spontaneous
  Country: FR (occurrence: FR)
  Receive Date: 20220912
  Receipt Date: 20220912
  Transmission Date: 20221026
  Serious: Yes (Hospitalization)
  Sender: FDA-Public Use
  Company Number: FR-NOVARTISPH-NVSC2019FR097185

PATIENT
  Age: 54 Year
  Sex: Male
  Weight: 87.5 kg

DRUGS (34)
  1. VANCOMYCIN [Suspect]
     Active Substance: VANCOMYCIN
     Indication: Sepsis
     Dosage: 3080 MG, QD
     Route: 065
     Dates: start: 20190605, end: 20190628
  2. VANCOMYCIN [Suspect]
     Active Substance: VANCOMYCIN
     Indication: Pain
  3. OCTREOTIDE [Suspect]
     Active Substance: OCTREOTIDE
     Indication: Gastrointestinal haemorrhage
     Dosage: 1.00 UNK, QD
     Route: 042
     Dates: start: 20190605, end: 20190607
  4. OCTREOTIDE [Suspect]
     Active Substance: OCTREOTIDE
     Dosage: 600 UG, QD
     Route: 065
     Dates: start: 20190605, end: 20190607
  5. OCTREOTIDE [Suspect]
     Active Substance: OCTREOTIDE
  6. DIPRIVAN [Suspect]
     Active Substance: PROPOFOL
     Indication: Pain
     Dosage: 1088 MG, QD
     Route: 065
     Dates: start: 20190515, end: 20190515
  7. ULTIVA [Suspect]
     Active Substance: REMIFENTANIL HYDROCHLORIDE
     Indication: Anaesthesia
     Dosage: 796 ?G, QD
     Route: 065
     Dates: start: 20190515, end: 20190515
  8. LOVENOX [Suspect]
     Active Substance: ENOXAPARIN SODIUM
     Indication: Thrombosis prophylaxis
     Dosage: 4000 IU, QD
     Route: 065
     Dates: start: 20190614
  9. MAGNESIUM [Suspect]
     Active Substance: MAGNESIUM
     Indication: Magnesium deficiency
     Dosage: 1.00 UNK, QD
     Route: 065
  10. AMIKACIN [Suspect]
     Active Substance: AMIKACIN
     Indication: Sepsis
     Dosage: 1500 MG, QD
     Route: 065
     Dates: start: 20190604, end: 20190604
  11. COLCHICINE [Suspect]
     Active Substance: COLCHICINE
     Indication: Gout
     Dosage: 2 MG, QD
     Route: 048
     Dates: start: 20190615, end: 20190617
  12. MORPHINE SULFATE [Suspect]
     Active Substance: MORPHINE SULFATE
     Indication: Pain
     Dosage: 15 MG, QD
     Route: 048
     Dates: start: 20190629, end: 20190705
  13. PIPERACILLIN AND TAZOBACTAM [Suspect]
     Active Substance: PIPERACILLIN SODIUM\TAZOBACTAM SODIUM
     Indication: Sepsis
     Dosage: 12 G, QD
     Route: 042
     Dates: start: 20190614, end: 20190624
  14. PIPERACILLIN AND TAZOBACTAM [Suspect]
     Active Substance: PIPERACILLIN SODIUM\TAZOBACTAM SODIUM
     Dosage: 12 G QD
     Route: 042
     Dates: start: 20190406, end: 20190607
  15. ZYRTEC [Suspect]
     Active Substance: CETIRIZINE HYDROCHLORIDE
     Indication: Allergy prophylaxis
     Dosage: 1 DF, QD DOSE UNIT: DOSAGE FORM
     Route: 065
     Dates: start: 20190606
  16. TINZAPARIN SODIUM [Suspect]
     Active Substance: TINZAPARIN SODIUM
     Indication: Thrombosis
     Dosage: 17000 IU, QD
     Route: 058
     Dates: start: 20190505, end: 20190520
  17. TRAMADOL [Suspect]
     Active Substance: TRAMADOL
     Indication: Pain
     Dosage: 50 MG, PRN
     Route: 048
     Dates: start: 20190520, end: 20190602
  18. PHYTONADIONE [Suspect]
     Active Substance: PHYTONADIONE
     Indication: Prothrombin time ratio decreased
     Dosage: 20 MG, QD
     Route: 042
     Dates: start: 20190604, end: 20190609
  19. DAPTOMYCIN [Suspect]
     Active Substance: DAPTOMYCIN
     Indication: Septic shock
     Dosage: 850 MG, QD
     Route: 065
     Dates: start: 20190701, end: 20190704
  20. NEFOPAM [Suspect]
     Active Substance: NEFOPAM
     Indication: Pain
     Dosage: 20 MG
     Route: 065
     Dates: start: 20190505
  21. TRAMADOL HYDROCHLORIDE [Suspect]
     Active Substance: TRAMADOL HYDROCHLORIDE
     Indication: Pain
     Dosage: 200 MG, QD
     Route: 048
     Dates: start: 20190515, end: 20190515
  22. PANTOPRAZOLE SODIUM [Suspect]
     Active Substance: PANTOPRAZOLE SODIUM
     Indication: Prophylaxis against gastrointestinal ulcer
     Dosage: 20 MG, QD
     Route: 048
     Dates: start: 20190505
  23. CEFTRIAXONE [Suspect]
     Active Substance: CEFTRIAXONE
     Indication: Sepsis
     Dosage: 1 G, QD
     Route: 065
     Dates: start: 20190607, end: 20190613
  24. CETIRIZINE [Suspect]
     Active Substance: CETIRIZINE HYDROCHLORIDE
     Indication: Allergy prophylaxis
     Dosage: 10 MG, QD
     Route: 065
     Dates: start: 20190606
  25. INNOHEP [Suspect]
     Active Substance: TINZAPARIN SODIUM
     Indication: Thrombosis
     Dosage: 17000 IU, QD
     Route: 065
     Dates: start: 20190505, end: 20190520
  26. METHYLPREDNISOLONE [Suspect]
     Active Substance: METHYLPREDNISOLONE
     Indication: Allergy prophylaxis
     Dosage: 60 MG, QD
     Route: 065
     Dates: start: 20190606, end: 20190606
  27. PROPOFOL [Suspect]
     Active Substance: PROPOFOL
     Indication: Pain
     Dosage: 1088 MG, QD
     Route: 065
     Dates: start: 20190515, end: 20190515
  28. REMIFENTANIL [Suspect]
     Active Substance: REMIFENTANIL
     Indication: Anaesthesia
     Dosage: 796 UG, QD
     Route: 065
     Dates: start: 20190515, end: 20190515
  29. MAGNESIUM [Suspect]
     Active Substance: MAGNESIUM
     Indication: Magnesium deficiency
     Dosage: 2 DOSAGE FORM, QD
     Route: 065
     Dates: start: 20190618, end: 20190705
  30. POLARAMINE [Suspect]
     Active Substance: DEXCHLORPHENIRAMINE MALEATE
     Indication: Allergy prophylaxis
     Dosage: 5 MG, QD
     Route: 065
     Dates: start: 20190606, end: 20190606
  31. VITAMIN K [Suspect]
     Active Substance: PHYTONADIONE
     Indication: Prothrombin time ratio decreased
     Dosage: 20 MG, QD
     Route: 065
     Dates: start: 20190604, end: 20190609
  32. TRAMADOL HYDROCHLORIDE [Suspect]
     Active Substance: TRAMADOL HYDROCHLORIDE
     Indication: Pain
     Dosage: 200 MG, QD
     Route: 065
     Dates: start: 20190515, end: 20190515
  33. KARDEGIC [Concomitant]
     Active Substance: ASPIRIN DL-LYSINE
     Indication: Ischaemic cardiomyopathy
     Dosage: 75 MG, QD
     Route: 048
  34. DOLIPRANE [Concomitant]
     Active Substance: ACETAMINOPHEN
     Indication: Pain
     Dosage: 1 G
     Route: 048

REACTIONS (1)
  - Drug reaction with eosinophilia and systemic symptoms [Not Recovered/Not Resolved]

NARRATIVE: CASE EVENT DATE: 20190701
